FAERS Safety Report 7294871-1 (Version None)
Quarter: 2011Q1

REPORT INFORMATION
  Report Type: 
  Country: None (occurrence: None)
  Receive Date: 20110216
  Receipt Date: 20110207
  Transmission Date: 20110831
  Serious: Yes (Life-Threatening)
  Sender: FDA-Public Use
  Company Number: IT-JNJFOC-20091200899

PATIENT
  Sex: Female

DRUGS (8)
  1. CIPROFLOXACIN [Concomitant]
     Indication: BACTERIAL INFECTION
  2. CIPROFLOXACIN [Concomitant]
     Route: 065
  3. PARACETAMOL [Suspect]
     Indication: ARTHRALGIA
     Route: 048
  4. PANTORC [Concomitant]
     Indication: GASTRITIS
  5. TRAMADOL HCL [Suspect]
     Indication: ARTHRALGIA
     Route: 048
  6. ACEPLUS [Concomitant]
     Indication: HYPERTENSION
  7. ATARAX [Concomitant]
     Indication: ANXIETY
     Route: 065
  8. ATARAX [Concomitant]
     Route: 065

REACTIONS (2)
  - STEVENS-JOHNSON SYNDROME [None]
  - ASTHENIA [None]
